FAERS Safety Report 25009005 (Version 1)
Quarter: 2025Q1

REPORT INFORMATION
  Report Type: Spontaneous
  Country: US (occurrence: US)
  Receive Date: 20250225
  Receipt Date: 20250225
  Transmission Date: 20250408
  Serious: No
  Sender: ROCHE
  Company Number: US-ROCHE-10000216671

PATIENT
  Sex: Female

DRUGS (2)
  1. RITUXAN [Suspect]
     Active Substance: RITUXIMAB
     Indication: Microscopic polyangiitis
     Route: 042
     Dates: start: 202203
  2. OFEV [Concomitant]
     Active Substance: NINTEDANIB

REACTIONS (2)
  - Drug ineffective [Unknown]
  - No adverse event [Unknown]
